FAERS Safety Report 9442334 (Version 1)
Quarter: 2013Q3

REPORT INFORMATION
  Report Type: Spontaneous
  Country: US (occurrence: US)
  Receive Date: 20130806
  Receipt Date: 20130806
  Transmission Date: 20140515
  Serious: No
  Sender: FDA-Public Use
  Company Number: US-GLAXOSMITHKLINE-A1006911A

PATIENT
  Age: 78 Year
  Sex: Female

DRUGS (3)
  1. ADVAIR [Suspect]
     Indication: ASTHMA
     Route: 055
     Dates: start: 201207, end: 20130101
  2. DIOVAN [Concomitant]
  3. ACIPHEX [Concomitant]

REACTIONS (4)
  - Cough [Recovered/Resolved]
  - Dysphonia [Recovered/Resolved]
  - Oropharyngeal discomfort [Recovered/Resolved]
  - Product quality issue [Unknown]
